FAERS Safety Report 4689863-2 (Version None)
Quarter: 2005Q2

REPORT INFORMATION
  Report Type: 
  Country: None (occurrence: None)
  Receive Date: 20050614
  Receipt Date: 20050604
  Transmission Date: 20051028
  Serious: Yes (Other)
  Sender: FDA-Public Use
  Company Number: US-JNJFOC-20050602512

PATIENT
  Age: 4 Year
  Sex: Female
  Weight: 19.05 kg

DRUGS (7)
  1. MOTRIN [Suspect]
  2. MOTRIN [Suspect]
     Indication: DRUG USE FOR UNKNOWN INDICATION
     Dosage: UNSPECIFIED DOSE
  3. TYLENOL [Suspect]
  4. TYLENOL [Suspect]
     Indication: DRUG USE FOR UNKNOWN INDICATION
     Dosage: UNSPECIFIED DOSE
  5. PEDICARE LONG-ACTING COUGH PLUS COLD GRAPE [Suspect]
  6. PEDICARE LONG-ACTING COUGH PLUS COLD GRAPE [Suspect]
  7. PEDICARE LONG-ACTING COUGH PLUS COLD GRAPE [Suspect]
     Indication: DRUG USE FOR UNKNOWN INDICATION
     Dosage: 1 TSP

REACTIONS (2)
  - ABASIA [None]
  - HYPERSENSITIVITY [None]
